FAERS Safety Report 8326867-2 (Version None)
Quarter: 2012Q2

REPORT INFORMATION
  Report Type: 
  Country: None (occurrence: None)
  Receive Date: 20120501
  Receipt Date: 20120418
  Transmission Date: 20120825
  Serious: Yes (Other)
  Sender: FDA-Public Use
  Company Number: SE-MYLANLABS-2012S1008046

PATIENT
  Age: 38 Year
  Sex: Male

DRUGS (3)
  1. NAPROXEN [Suspect]
     Indication: ARTHRALGIA
     Dates: start: 20120405, end: 20120408
  2. CIPROFLOXACIN [Concomitant]
     Indication: PROSTATITIS
     Dates: start: 20120315, end: 20120330
  3. NAPROXEN [Suspect]
     Indication: OSTEITIS
     Dates: start: 20120405, end: 20120408

REACTIONS (12)
  - SOMNOLENCE [None]
  - RASH [None]
  - DRY EYE [None]
  - VISUAL ACUITY REDUCED [None]
  - PYREXIA [None]
  - MALAISE [None]
  - PHOTOSENSITIVITY REACTION [None]
  - INFREQUENT BOWEL MOVEMENTS [None]
  - ABDOMINAL PAIN [None]
  - NASOPHARYNGITIS [None]
  - THIRST [None]
  - DRY MOUTH [None]
